FAERS Safety Report 6088690-1 (Version None)
Quarter: 2009Q1

REPORT INFORMATION
  Report Type: 
  Country: None (occurrence: None)
  Receive Date: 20090219
  Receipt Date: 20090204
  Transmission Date: 20090719
  Serious: Yes (Disabling)
  Sender: FDA-Public Use
  Company Number: DSA_33223_2009

PATIENT
  Age: 75 Year
  Sex: Male

DRUGS (11)
  1. BI-TILDIEM (BI-TILDIEM - DILTIAZEM HYDROCHLORIDE) 90 MG (NOT SPECIFIED [Suspect]
     Indication: DRUG USE FOR UNKNOWN INDICATION
     Dosage: (90 MG BID ORAL)
     Route: 048
  2. FUROSEMIDE [Suspect]
     Indication: DRUG USE FOR UNKNOWN INDICATION
     Dosage: (10 MG BID ORAL)
     Route: 048
  3. NICORANDIL (NICORANDIL) [Suspect]
     Indication: DRUG USE FOR UNKNOWN INDICATION
     Dosage: (DF ORAL)
     Route: 048
  4. ALDACTONE [Suspect]
     Indication: DRUG USE FOR UNKNOWN INDICATION
     Dosage: (50 MG BID ORAL)
     Route: 048
  5. DISCOTRINE (DISCOTRINE) 10 MG (NOT SPECIFIED) [Suspect]
     Indication: DRUG USE FOR UNKNOWN INDICATION
     Dosage: (10 MG QD ORAL)
     Route: 048
  6. SIMVASTATIN [Concomitant]
  7. DIAMICRON (UNKNOWN) [Concomitant]
  8. ZOLPIDEM (UNKNOWN) [Concomitant]
  9. OMEPRAZOLE (UNKNOWN) [Concomitant]
  10. CORTANCYL (UNKNOWN) [Concomitant]
  11. KALEORID (UNKNOWN) [Concomitant]

REACTIONS (2)
  - FALL [None]
  - TIBIA FRACTURE [None]
